FAERS Safety Report 19826383 (Version 1)
Quarter: 2021Q3

REPORT INFORMATION
  Report Type: Spontaneous
  Country: US (occurrence: US)
  Receive Date: 20210914
  Receipt Date: 20210914
  Transmission Date: 20211014
  Serious: Yes (Other)
  Sender: FDA-Public Use
  Company Number: None

PATIENT
  Age: 69 Year
  Sex: Female
  Weight: 68.04 kg

DRUGS (1)
  1. PROHANCE [Suspect]
     Active Substance: GADOTERIDOL

REACTIONS (7)
  - Confusional state [None]
  - Thinking abnormal [None]
  - Balance disorder [None]
  - Contrast media reaction [None]
  - Disturbance in attention [None]
  - Dizziness [None]
  - Dissociative disorder [None]

NARRATIVE: CASE EVENT DATE: 20210825
